FAERS Safety Report 18090864 (Version 1)
Quarter: 2020Q3

REPORT INFORMATION
  Report Type: Spontaneous
  Country: CA (occurrence: CA)
  Receive Date: 20200730
  Receipt Date: 20200730
  Transmission Date: 20201103
  Serious: Yes (Other)
  Sender: FDA-Public Use
  Company Number: CA-ACCORD-193487

PATIENT
  Age: 78 Year
  Sex: Male

DRUGS (4)
  1. MYCOPHENOLATE MOFETIL/MYCOPHENOLATE SODIUM/MYCOPHENOLIC ACID [Suspect]
     Active Substance: MYCOPHENOLIC ACID
     Indication: PYODERMA GANGRENOSUM
  2. USTEKINUMAB [Suspect]
     Active Substance: USTEKINUMAB
     Indication: PYODERMA GANGRENOSUM
     Dates: start: 201804
  3. PREDNISONE. [Suspect]
     Active Substance: PREDNISONE
     Indication: PYODERMA GANGRENOSUM
     Dates: start: 201804, end: 201811
  4. CICLOSPORIN [Suspect]
     Active Substance: CYCLOSPORINE
     Indication: PYODERMA GANGRENOSUM

REACTIONS (8)
  - Sporotrichosis [Recovering/Resolving]
  - Treatment failure [Unknown]
  - Gastrointestinal disorder [Unknown]
  - Cutaneous sporotrichosis [Recovering/Resolving]
  - Hypertension [Unknown]
  - Peripheral swelling [Unknown]
  - Off label use [Unknown]
  - Condition aggravated [Recovering/Resolving]
